FAERS Safety Report 9360409 (Version 1)
Quarter: 2013Q2

REPORT INFORMATION
  Report Type: Spontaneous
  Country: US (occurrence: US)
  Receive Date: 20130621
  Receipt Date: 20130621
  Transmission Date: 20140414
  Serious: No
  Sender: FDA-Public Use
  Company Number: US-US-EMD SERONO, INC.-7167540

PATIENT
  Sex: Female

DRUGS (2)
  1. REBIF [Suspect]
     Indication: MULTIPLE SCLEROSIS
     Route: 058
     Dates: start: 20120524
  2. WELBUTRIN [Concomitant]
     Indication: DEPRESSION

REACTIONS (3)
  - Stress [Not Recovered/Not Resolved]
  - Anger [Unknown]
  - Anxiety [Not Recovered/Not Resolved]
